FAERS Safety Report 17614688 (Version 1)
Quarter: 2020Q2

REPORT INFORMATION
  Report Type: Spontaneous
  Country: US (occurrence: US)
  Receive Date: 20200402
  Receipt Date: 20200402
  Transmission Date: 20200713
  Serious: Yes (Other)
  Sender: FDA-Public Use
  Company Number: NVSC2020US086684

PATIENT
  Age: 33 Year
  Sex: Female

DRUGS (3)
  1. LORAZEPAM. [Suspect]
     Active Substance: LORAZEPAM
     Indication: DYSTONIA
     Dosage: 1 MG, TID
     Route: 065
  2. DIPHENHYDRAMINE HYDROCHLORIDE. [Suspect]
     Active Substance: DIPHENHYDRAMINE HYDROCHLORIDE
     Indication: DYSTONIA
     Dosage: 50 MG, TID
     Route: 065
  3. PROPRANOLOL [Suspect]
     Active Substance: PROPRANOLOL HYDROCHLORIDE
     Indication: DYSTONIA
     Dosage: 20 MG
     Route: 065

REACTIONS (2)
  - Product use in unapproved indication [Unknown]
  - Dystonia [Unknown]
